FAERS Safety Report 7082070-8 (Version None)
Quarter: 2010Q4

REPORT INFORMATION
  Report Type: 
  Country: None (occurrence: None)
  Receive Date: 20101103
  Receipt Date: 20101025
  Transmission Date: 20110411
  Serious: No
  Sender: FDA-Public Use
  Company Number: US-PFIZER INC-2010135869

PATIENT
  Sex: Female

DRUGS (2)
  1. LYRICA [Suspect]
     Dosage: UNK
  2. OXYCONTIN [Suspect]
     Dosage: UNK

REACTIONS (2)
  - DRUG INEFFECTIVE [None]
  - EXPIRED DRUG ADMINISTERED [None]
